FAERS Safety Report 7953431-7 (Version None)
Quarter: 2011Q4

REPORT INFORMATION
  Report Type: 
  Country: None (occurrence: None)
  Receive Date: 20111202
  Receipt Date: 20111128
  Transmission Date: 20120403
  Serious: Yes (Other)
  Sender: FDA-Public Use
  Company Number: US-PFIZER INC-2011246927

PATIENT
  Sex: Male
  Weight: 71.2 kg

DRUGS (1)
  1. SUTENT [Suspect]
     Indication: RENAL CANCER
     Dosage: 37.5MG, UNK
     Route: 048
     Dates: start: 20110901, end: 20111001

REACTIONS (12)
  - BACK PAIN [None]
  - EATING DISORDER [None]
  - VOMITING [None]
  - OESOPHAGITIS [None]
  - DYSPNOEA [None]
  - HYPERTENSION [None]
  - ABDOMINAL PAIN UPPER [None]
  - MUCOSAL INFLAMMATION [None]
  - WEIGHT DECREASED [None]
  - FATIGUE [None]
  - ERUCTATION [None]
  - NAUSEA [None]
